FAERS Safety Report 7689604-0 (Version None)
Quarter: 2011Q3

REPORT INFORMATION
  Report Type: 
  Country: None (occurrence: None)
  Receive Date: 20110817
  Receipt Date: 20110811
  Transmission Date: 20111222
  Serious: Yes (Hospitalization)
  Sender: FDA-Public Use
  Company Number: AU-AMGEN-AUSCT2011038691

PATIENT
  Age: 62 Year
  Sex: Female

DRUGS (15)
  1. NEULASTA [Concomitant]
     Indication: NEUTROPENIA
     Dosage: UNK UNK, QWK
     Route: 058
     Dates: start: 20110506
  2. IBUPROFEN [Concomitant]
     Indication: ARTHRALGIA
     Dosage: UNK UNK, PRN
     Route: 048
     Dates: start: 20110519
  3. PLACEBO [Suspect]
     Indication: BREAST CANCER
     Dosage: UNK
     Dates: start: 20110504
  4. CALTRATE D [Concomitant]
     Indication: SPINAL CORD COMPRESSION
     Dosage: 1000 MG, QD
     Route: 048
     Dates: start: 20100201
  5. OSTELIN [Concomitant]
     Indication: SUPPLEMENTATION THERAPY
     Dosage: UNK UNK, PRN
     Route: 048
     Dates: start: 20110504
  6. COLOXYL WITH SENNA [Concomitant]
     Indication: CONSTIPATION
     Dosage: UNK UNK, PRN
     Route: 048
     Dates: start: 20110508
  7. ACETAMINOPHEN AND CODEINE PHOSPHATE [Concomitant]
     Indication: ARTHRALGIA
     Dosage: UNK UNK, PRN
     Route: 048
     Dates: start: 20110519
  8. MAXOLON [Concomitant]
     Indication: NAUSEA
     Dosage: 10 MG, UNK
     Route: 048
     Dates: start: 20110506
  9. IBUPROFEN [Concomitant]
     Indication: BACK PAIN
  10. ATIVAN [Concomitant]
     Indication: NAUSEA
     Dosage: UNK UNK, PRN
     Route: 048
     Dates: start: 20110517
  11. CODEINE SULFATE [Concomitant]
     Indication: ARTHRALGIA
     Dosage: UNK
     Route: 048
     Dates: start: 20110527
  12. PACLITAXEL [Concomitant]
     Dosage: 310 ML, 2 TIMES/WK
     Route: 042
     Dates: start: 20110706
  13. LIPITOR [Concomitant]
     Indication: HYPOCHOLESTEROLAEMIA
     Dosage: 20 MG, QD
     Route: 048
     Dates: start: 20100201
  14. FISH OIL [Concomitant]
     Indication: SUPPLEMENTATION THERAPY
     Dosage: 4000 MG, QD
     Route: 048
     Dates: start: 20080101
  15. BLINDED DENOSUMAB [Suspect]
     Indication: BREAST CANCER
     Dosage: UNK
     Dates: start: 20110504

REACTIONS (1)
  - PNEUMONIA [None]
